FAERS Safety Report 8473570-4 (Version None)
Quarter: 2012Q2

REPORT INFORMATION
  Report Type: 
  Country: None (occurrence: None)
  Receive Date: 20120628
  Receipt Date: 20110603
  Transmission Date: 20120825
  Serious: Yes (Other)
  Sender: FDA-Public Use
  Company Number: US-MYLANLABS-2011S1011840

PATIENT
  Age: 21 Year
  Sex: Male

DRUGS (5)
  1. BENZTROPINE MESYLATE [Concomitant]
     Route: 048
  2. GEODON [Concomitant]
     Route: 048
  3. ZYPREXA [Concomitant]
     Route: 048
  4. CLOZAPINE [Suspect]
     Route: 048
     Dates: start: 20110401, end: 20110601
  5. LITHIUM CARBONATE [Concomitant]
     Route: 048

REACTIONS (2)
  - GRANULOCYTOPENIA [None]
  - LEUKOPENIA [None]
